FAERS Safety Report 4444727-4 (Version None)
Quarter: 2004Q3

REPORT INFORMATION
  Report Type: 
  Country: None (occurrence: None)
  Receive Date: 20040903
  Receipt Date: 20040824
  Transmission Date: 20050211
  Serious: Yes (Other)
  Sender: FDA-Public Use
  Company Number: 2004020718

PATIENT
  Age: 67 Year
  Sex: Male

DRUGS (1)
  1. LIPITOR [Suspect]
     Indication: HYPERCHOLESTEROLAEMIA
     Dosage: 20 MG (DAILY), ORAL
     Route: 048
     Dates: start: 19960101, end: 20031110

REACTIONS (8)
  - ABDOMINAL TENDERNESS [None]
  - CONDITION AGGRAVATED [None]
  - FATIGUE [None]
  - HEPATIC CONGESTION [None]
  - HEPATIC FUNCTION ABNORMAL [None]
  - HERPES ZOSTER [None]
  - HYPERAESTHESIA [None]
  - PSORIASIS [None]
